FAERS Safety Report 6600313-9 (Version None)
Quarter: 2010Q1

REPORT INFORMATION
  Report Type: 
  Country: None (occurrence: None)
  Receive Date: 20100217
  Receipt Date: 20100201
  Transmission Date: 20100710
  Serious: Yes (Other)
  Sender: FDA-Public Use
  Company Number: 1-21549294

PATIENT
  Age: 40 Year
  Sex: Female
  Weight: 93.8039 kg

DRUGS (8)
  1. WARFARIN SODIUM [Suspect]
     Indication: PULMONARY EMBOLISM
     Dosage: 12.5 MG, DAILY
  2. ORAL CONTRACEPTIVES [Concomitant]
  3. LEVOTHYROXINE [Concomitant]
  4. ENOXAPARIN SODIUM [Concomitant]
  5. NSAIDS [Concomitant]
  6. ALTEPLASE [Concomitant]
  7. INTRAVENOUS HEPARIN [Concomitant]
  8. SUBCUTANEOUS HEPARIN [Concomitant]

REACTIONS (3)
  - CYTOGENETIC ABNORMALITY [None]
  - DRUG LEVEL BELOW THERAPEUTIC [None]
  - DRUG RESISTANCE [None]
